FAERS Safety Report 11906090 (Version 1)
Quarter: 2016Q1

REPORT INFORMATION
  Report Type: Spontaneous
  Country: US (occurrence: None)
  Receive Date: 20160108
  Receipt Date: 20160108
  Transmission Date: 20160526
  Serious: Yes (Other)
  Sender: FDA-Public Use
  Company Number: None

PATIENT
  Age: 43 Year
  Sex: Male
  Weight: 99.79 kg

DRUGS (5)
  1. CULTURELLE [Concomitant]
     Active Substance: LACTOBACILLUS RHAMNOSUS
  2. DEPAKOTE ER [Suspect]
     Active Substance: DIVALPROEX SODIUM
     Indication: SEIZURE
     Dosage: 1500/6 PILLS BID ORAL
     Route: 048
     Dates: start: 20151031, end: 20160106
  3. LISINOPRIL. [Concomitant]
     Active Substance: LISINOPRIL
  4. ZARONTIN [Concomitant]
     Active Substance: ETHOSUXIMIDE
  5. DILANTIN [Concomitant]
     Active Substance: PHENYTOIN

REACTIONS (3)
  - Condition aggravated [None]
  - Seizure [None]
  - Mood altered [None]

NARRATIVE: CASE EVENT DATE: 20160106
